FAERS Safety Report 7980677-4 (Version None)
Quarter: 2011Q4

REPORT INFORMATION
  Report Type: 
  Country: None (occurrence: None)
  Receive Date: 20111214
  Receipt Date: 20111201
  Transmission Date: 20120403
  Serious: Yes (Other)
  Sender: FDA-Public Use
  Company Number: GB-WATSON-2011-09022

PATIENT
  Sex: Female
  Weight: 275 kg

DRUGS (5)
  1. RAMIPRIL [Suspect]
     Indication: RENAL VESSEL DISORDER
     Route: 048
  2. SEROQUEL [Suspect]
     Indication: SCHIZOAFFECTIVE DISORDER BIPOLAR TYPE
     Dosage: 450 MG, DAILY
     Route: 048
     Dates: start: 20100101
  3. ESCITALOPRAM [Concomitant]
     Indication: ANXIETY
     Dosage: 10 MG, DAILY
     Route: 065
  4. VALPROATE SODIUM [Concomitant]
     Indication: MOOD ALTERED
     Dosage: 800 MG, DAILY
     Route: 048
  5. ESCITALOPRAM [Concomitant]
     Indication: DEPRESSION

REACTIONS (6)
  - DIVERTICULITIS [None]
  - ANXIETY [None]
  - DIARRHOEA [None]
  - DIZZINESS [None]
  - ORTHOSTATIC HYPOTENSION [None]
  - DRUG INTOLERANCE [None]
